FAERS Safety Report 6074170-6 (Version None)
Quarter: 2009Q1

REPORT INFORMATION
  Report Type: 
  Country: None (occurrence: None)
  Receive Date: 20090211
  Receipt Date: 20090209
  Transmission Date: 20090719
  Serious: Yes (Other)
  Sender: FDA-Public Use
  Company Number: US-ASTRAZENECA-2007UW10932

PATIENT
  Age: 14109 Day
  Sex: Female
  Weight: 111.1 kg

DRUGS (10)
  1. SEROQUEL [Suspect]
     Indication: DEPRESSION
     Route: 048
     Dates: start: 20040112, end: 20061025
  2. SEROQUEL [Suspect]
     Indication: ANXIETY
     Route: 048
     Dates: start: 20040112, end: 20061025
  3. RISPERDAL [Concomitant]
     Indication: DEPRESSION
     Dosage: 0.25 MG BID TO 1 MG BID
     Route: 048
     Dates: start: 20061115, end: 20070113
  4. PROZAC [Concomitant]
     Dosage: TWO 20 MG TABLETS DAILY
  5. LEXAPRO [Concomitant]
     Dates: start: 20010101
  6. GABITRIL [Concomitant]
     Dates: start: 20040101
  7. ATIVAN [Concomitant]
  8. KLONOPIN [Concomitant]
  9. CYMBALTA [Concomitant]
     Dosage: TWO 60 MG TABLETS PER DAY
  10. TRAZODONE HCL [Concomitant]
     Dosage: TWO 50 MG TABLETS PER DAY
     Dates: start: 20070101

REACTIONS (2)
  - INTERVERTEBRAL DISC PROTRUSION [None]
  - TYPE 2 DIABETES MELLITUS [None]
